FAERS Safety Report 5986185-4 (Version None)
Quarter: 2008Q4

REPORT INFORMATION
  Report Type: 
  Country: None (occurrence: None)
  Receive Date: 20081209
  Receipt Date: 20080404
  Transmission Date: 20090506
  Serious: No
  Sender: FDA-Public Use
  Company Number: US-AMGEN-KDL272953

PATIENT
  Sex: Female

DRUGS (3)
  1. ENBREL [Suspect]
     Indication: RHEUMATOID ARTHRITIS
     Route: 058
     Dates: start: 20080331
  2. PLAQUENIL [Concomitant]
     Dates: start: 20040301
  3. METHOTREXATE [Concomitant]
     Route: 048
     Dates: start: 20070301

REACTIONS (3)
  - HEADACHE [None]
  - RESPIRATORY TRACT CONGESTION [None]
  - RHINITIS [None]
